FAERS Safety Report 7436614-4 (Version None)
Quarter: 2011Q2

REPORT INFORMATION
  Report Type: 
  Country: None (occurrence: None)
  Receive Date: 20110426
  Receipt Date: 20110415
  Transmission Date: 20111010
  Serious: Yes (Other)
  Sender: FDA-Public Use
  Company Number: US-RB-024196-11

PATIENT
  Age: 62 Year
  Sex: Male

DRUGS (1)
  1. GUAIFENESIN [Suspect]
     Dosage: TAKEN FOR 3 MONTHS
     Route: 048

REACTIONS (2)
  - HAEMOPTYSIS [None]
  - INCORRECT DRUG ADMINISTRATION DURATION [None]
